FAERS Safety Report 8592775-5 (Version None)
Quarter: 2012Q3

REPORT INFORMATION
  Report Type: 
  Country: None (occurrence: None)
  Receive Date: 20120814
  Receipt Date: 20120813
  Transmission Date: 20120928
  Serious: Yes (Other)
  Sender: FDA-Public Use
  Company Number: ES-ROCHE-1068614

PATIENT
  Sex: Female

DRUGS (2)
  1. FOLIC ACID [Concomitant]
  2. ACTEMRA [Suspect]
     Indication: RHEUMATOID ARTHRITIS
     Dates: start: 20101219, end: 20120110

REACTIONS (1)
  - PYODERMA GANGRENOSUM [None]
